FAERS Safety Report 24646329 (Version 1)
Quarter: 2024Q4

REPORT INFORMATION
  Report Type: Spontaneous
  Country: TR (occurrence: TR)
  Receive Date: 20241121
  Receipt Date: 20241121
  Transmission Date: 20250115
  Serious: Yes (Hospitalization)
  Sender: IPCA
  Company Number: TR-IPCA LABORATORIES LIMITED-IPC-2024-TR-002718

PATIENT

DRUGS (4)
  1. QUETIAPINE [Suspect]
     Active Substance: QUETIAPINE
     Indication: Mania
     Dosage: 600 MILLIGRAM, QD
     Route: 065
  2. QUETIAPINE [Suspect]
     Active Substance: QUETIAPINE
     Dosage: 300 MILLIGRAM, QD
     Route: 065
  3. QUETIAPINE [Suspect]
     Active Substance: QUETIAPINE
     Dosage: UNK
  4. HALOPERIDOL DECANOATE [Concomitant]
     Active Substance: HALOPERIDOL DECANOATE
     Indication: Mania
     Dosage: 50 UNK, QD
     Route: 065

REACTIONS (2)
  - Oedema peripheral [Recovered/Resolved]
  - Face oedema [Recovered/Resolved]
